FAERS Safety Report 4474682-2 (Version None)
Quarter: 2004Q4

REPORT INFORMATION
  Report Type: 
  Country: None (occurrence: None)
  Receive Date: 20041012
  Receipt Date: 20040923
  Transmission Date: 20050328
  Serious: Yes (Life-Threatening)
  Sender: FDA-Public Use
  Company Number: 2004AP05038

PATIENT
  Age: 73 Year
  Sex: Male

DRUGS (10)
  1. NOLVADEX ^ASTRAZENECA^ [Suspect]
     Indication: BREAST CANCER MALE
     Dosage: 10 MG DAILY PO
     Route: 048
     Dates: start: 20021101, end: 20040901
  2. MYONAL [Concomitant]
  3. DEPAKENE [Concomitant]
  4. NORVASC [Concomitant]
  5. COVERSYL [Concomitant]
  6. BERIZYM [Concomitant]
  7. ALTAT [Concomitant]
  8. PURSENNID [Concomitant]
  9. PANTOSIN [Concomitant]
  10. HEAVY MAGNESIUM OXIDE [Concomitant]

REACTIONS (4)
  - ACUTE MYOCARDIAL INFARCTION [None]
  - CORONARY ARTERY STENOSIS [None]
  - ELECTROCARDIOGRAM T WAVE INVERSION [None]
  - FALL [None]
